FAERS Safety Report 18684060 (Version 1)
Quarter: 2020Q4

REPORT INFORMATION
  Report Type: Spontaneous
  Country: US (occurrence: US)
  Receive Date: 20201230
  Receipt Date: 20201230
  Transmission Date: 20210114
  Serious: Yes (Hospitalization, Other)
  Sender: FDA-Public Use
  Company Number: US-MYLANLABS-2020M1106253

PATIENT
  Age: 13 Year
  Sex: Male

DRUGS (5)
  1. DESVENLAFAXINE SUCCINATE. [Suspect]
     Active Substance: DESVENLAFAXINE SUCCINATE
     Indication: OBSESSIVE-COMPULSIVE DISORDER
     Dosage: 50 MILLIGRAM, QD
     Route: 065
  2. GUANFACINE. [Concomitant]
     Active Substance: GUANFACINE
     Indication: IMPULSE-CONTROL DISORDER
     Dosage: 1 MILLIGRAM, BID
     Route: 065
  3. TOPIRAMATE. [Suspect]
     Active Substance: TOPIRAMATE
     Dosage: 25 MILLIGRAM, BID
     Route: 065
  4. TOPIRAMATE. [Suspect]
     Active Substance: TOPIRAMATE
     Indication: TOURETTE^S DISORDER
     Dosage: 75 MILLIGRAM, BID
     Route: 065
  5. LURASIDONE [Suspect]
     Active Substance: LURASIDONE
     Indication: TIC
     Dosage: 60 MILLIGRAM, QD
     Route: 065

REACTIONS (3)
  - Off label use [Unknown]
  - Suicidal ideation [Recovered/Resolved]
  - Drug ineffective for unapproved indication [Unknown]
